FAERS Safety Report 15533295 (Version 1)
Quarter: 2018Q4

REPORT INFORMATION
  Report Type: Spontaneous
  Country: ES (occurrence: ES)
  Receive Date: 20181019
  Receipt Date: 20181019
  Transmission Date: 20190205
  Serious: Yes (Hospitalization, Other)
  Sender: FDA-Public Use
  Company Number: ES-GLAXOSMITHKLINE-ES2018190121

PATIENT
  Age: 42 Year
  Sex: Male

DRUGS (1)
  1. ORLISTAT. [Suspect]
     Active Substance: ORLISTAT
     Indication: OBESITY
     Dosage: 240 MG, QD
     Route: 065

REACTIONS (3)
  - Acute hepatic failure [Recovered/Resolved]
  - Hepatic necrosis [Recovered/Resolved]
  - Coagulopathy [Recovered/Resolved]
